FAERS Safety Report 7784523-3 (Version None)
Quarter: 2011Q3

REPORT INFORMATION
  Report Type: 
  Country: None (occurrence: None)
  Receive Date: 20110928
  Receipt Date: 20110921
  Transmission Date: 20111222
  Serious: Yes (Death)
  Sender: FDA-Public Use
  Company Number: DE-ALEXION-A201101451

PATIENT

DRUGS (2)
  1. SOLIRIS [Suspect]
     Dosage: 900 MG, Q2W
  2. SOLIRIS [Suspect]
     Indication: PAROXYSMAL NOCTURNAL HAEMOGLOBINURIA
     Dosage: 600 MG, QW

REACTIONS (5)
  - RESPIRATORY FAILURE [None]
  - BONE MARROW FAILURE [None]
  - STEM CELL TRANSPLANT [None]
  - PAROXYSMAL NOCTURNAL HAEMOGLOBINURIA [None]
  - CONDITION AGGRAVATED [None]
